FAERS Safety Report 7698948-8 (Version None)
Quarter: 2011Q3

REPORT INFORMATION
  Report Type: 
  Country: None (occurrence: None)
  Receive Date: 20110819
  Receipt Date: 20110810
  Transmission Date: 20111222
  Serious: Yes (Other)
  Sender: FDA-Public Use
  Company Number: US-MYLANLABS-2011S1016884

PATIENT
  Age: 50 Year
  Sex: Male

DRUGS (5)
  1. FENTANYL-100 [Suspect]
  2. ZOCOR [Suspect]
  3. SUDAFED 12 HOUR [Suspect]
  4. HYDROCHLOROTHIAZIDE [Suspect]
  5. VIAGRA [Suspect]

REACTIONS (1)
  - DRUG HYPERSENSITIVITY [None]
